FAERS Safety Report 8234997-9 (Version None)
Quarter: 2012Q1

REPORT INFORMATION
  Report Type: 
  Country: None (occurrence: None)
  Receive Date: 20120326
  Receipt Date: 20120312
  Transmission Date: 20120608
  Serious: Yes (Hospitalization)
  Sender: FDA-Public Use
  Company Number: US-SANOFI-AVENTIS-2012SA017167

PATIENT
  Sex: Male

DRUGS (11)
  1. ALL OTHER THERAPEUTIC PRODUCTS [Concomitant]
  2. ANTIBIOTICS [Concomitant]
  3. ALL OTHER THERAPEUTIC PRODUCTS [Concomitant]
  4. ALL OTHER THERAPEUTIC PRODUCTS [Concomitant]
  5. FLECAINIDE ACETATE [Concomitant]
  6. DIURETICS [Concomitant]
  7. VERAPAMIL [Concomitant]
  8. OTHER ANTIINFLAMMATORY AGENTS IN COMB. [Concomitant]
  9. LASIX [Suspect]
  10. RAMIPRIL [Concomitant]
  11. ALL OTHER THERAPEUTIC PRODUCTS [Concomitant]

REACTIONS (8)
  - HYPERTENSION [None]
  - MIGRAINE [None]
  - DRUG INEFFECTIVE [None]
  - HEART RATE INCREASED [None]
  - URINARY RETENTION [None]
  - ATRIAL FIBRILLATION [None]
  - FLUID RETENTION [None]
  - HEADACHE [None]
